FAERS Safety Report 7470794-X (Version None)
Quarter: 2011Q2

REPORT INFORMATION
  Report Type: 
  Country: None (occurrence: None)
  Receive Date: 20110426
  Receipt Date: 20110408
  Transmission Date: 20111010
  Serious: Yes (Hospitalization)
  Sender: FDA-Public Use
  Company Number: 2011028168

PATIENT
  Age: 17 Year
  Sex: Male

DRUGS (7)
  1. TIBERAL (ORNIDAZOLE) [Concomitant]
  2. PRIMAXIN [Concomitant]
  3. ROCEPHIN [Concomitant]
  4. PRIVIGEN [Suspect]
     Dosage: 0.5 G/KG INTRAVENOUS (NOT OTHERWISE SPECIFIED)
     Route: 042
     Dates: start: 20101224, end: 20101225
  5. ALBUMIN (HUMAN) [Concomitant]
  6. LOVENOX [Concomitant]
  7. CORTICOSTEROIDS (CORTICOSTEROIDS) [Concomitant]

REACTIONS (5)
  - LUNG DISORDER [None]
  - OXYGEN SATURATION DECREASED [None]
  - PLEURISY [None]
  - PRODUCTIVE COUGH [None]
  - BLOOD PRESSURE SYSTOLIC INCREASED [None]
